FAERS Safety Report 19779547 (Version 1)
Quarter: 2021Q3

REPORT INFORMATION
  Report Type: Spontaneous
  Country: DK (occurrence: DK)
  Receive Date: 20210902
  Receipt Date: 20210902
  Transmission Date: 20211014
  Serious: Yes (Other)
  Sender: FDA-Public Use
  Company Number: DK-ASTRAZENECA-2021A701205

PATIENT
  Age: 66 Year

DRUGS (2)
  1. FULVESTRANT. [Suspect]
     Active Substance: FULVESTRANT
     Indication: BREAST CANCER
     Dosage: UNK, UNKNOWN
     Route: 065
  2. ABEMACICLIB [Suspect]
     Active Substance: ABEMACICLIB
     Indication: BREAST CANCER
     Dosage: UNK, UNKNOWN
     Route: 065

REACTIONS (3)
  - Diarrhoea [Unknown]
  - Nausea [Unknown]
  - Interstitial lung disease [Unknown]
